FAERS Safety Report 13418266 (Version 2)
Quarter: 2017Q2

REPORT INFORMATION
  Report Type: Spontaneous
  Country: US (occurrence: US)
  Receive Date: 20170407
  Receipt Date: 20170410
  Transmission Date: 20170830
  Serious: No
  Sender: FDA-Public Use
  Company Number: US-BIOGEN-2017BI00382323

PATIENT
  Sex: Female

DRUGS (2)
  1. AVONEX [Suspect]
     Active Substance: INTERFERON BETA-1A
     Indication: MULTIPLE SCLEROSIS
     Route: 065
     Dates: start: 20010511, end: 20031001
  2. AVONEX [Suspect]
     Active Substance: INTERFERON BETA-1A
     Route: 065
     Dates: start: 20010511, end: 20040204

REACTIONS (8)
  - Feeling abnormal [Unknown]
  - Scar [Unknown]
  - Central nervous system lesion [Unknown]
  - Rash [Unknown]
  - Pain [Unknown]
  - Hemiparesis [Unknown]
  - Injection site reaction [Unknown]
  - Crying [Unknown]
